FAERS Safety Report 5241703-9 (Version None)
Quarter: 2007Q1

REPORT INFORMATION
  Report Type: 
  Country: None (occurrence: None)
  Receive Date: 20070220
  Receipt Date: 20070214
  Transmission Date: 20070707
  Serious: Yes (Hospitalization, Other)
  Sender: FDA-Public Use
  Company Number: HQWYE868129JAN07

PATIENT
  Age: 22 Year
  Sex: Female

DRUGS (2)
  1. PREMARIN [Suspect]
     Indication: MENSTRUATION IRREGULAR
     Route: 048
     Dates: start: 20061114, end: 20070112
  2. DUPHASTON [Suspect]
     Indication: MENSTRUATION IRREGULAR
     Route: 048
     Dates: start: 20061114, end: 20070112

REACTIONS (1)
  - LIVER DISORDER [None]
